FAERS Safety Report 4311720-1 (Version None)
Quarter: 2004Q1

REPORT INFORMATION
  Report Type: 
  Country: None (occurrence: None)
  Receive Date: 20040302
  Receipt Date: 20031121
  Transmission Date: 20041129
  Serious: No
  Sender: FDA-Public Use
  Company Number: 200326493BWH

PATIENT
  Sex: Male

DRUGS (2)
  1. LEVITRA [Suspect]
     Dosage: 10 MG, PRN, ORAL; 20 MG, PRN, ORAL
     Route: 048
  2. LEVITRA [Suspect]

REACTIONS (1)
  - DRUG INEFFECTIVE [None]
